FAERS Safety Report 22854140 (Version 5)
Quarter: 2024Q2

REPORT INFORMATION
  Report Type: Spontaneous
  Country: CA (occurrence: CA)
  Receive Date: 20230823
  Receipt Date: 20240531
  Transmission Date: 20240716
  Serious: Yes (Other)
  Sender: FDA-Public Use
  Company Number: CA-PFIZER INC-202300247134

PATIENT
  Age: 18 Year
  Sex: Male

DRUGS (4)
  1. RUXIENCE [Suspect]
     Active Substance: RITUXIMAB-PVVR
     Indication: Juvenile idiopathic arthritis
     Dosage: 850 MG, DAY 1 AND DAY 15 REPEAT EVERY 6 MONTHS
     Route: 042
     Dates: start: 20230801, end: 20230817
  2. RUXIENCE [Suspect]
     Active Substance: RITUXIMAB-PVVR
     Indication: Castleman^s disease
     Dosage: 850 MG, DAY 1 AND DAY 15 REPEAT EVERY 6 MONTHS (DAY 15)
     Route: 042
     Dates: start: 20230817
  3. RUXIENCE [Suspect]
     Active Substance: RITUXIMAB-PVVR
     Dosage: 850 MG, DAY 1 AND DAY 15 (3 WEEKS AND 4 DAYS)
     Route: 042
     Dates: start: 20230911
  4. RUXIENCE [Suspect]
     Active Substance: RITUXIMAB-PVVR
     Dosage: 1000 MG (SUPPOSED TO RECEIVE 850 MG, DAY 1 AND DAY 15 EVERY 6 MONTHS)
     Route: 042
     Dates: start: 20240527

REACTIONS (10)
  - Chest discomfort [Recovered/Resolved]
  - Dyspnoea [Recovered/Resolved]
  - Abdominal pain [Recovered/Resolved]
  - Cough [Recovering/Resolving]
  - Diarrhoea [Recovering/Resolving]
  - Feeling hot [Recovering/Resolving]
  - Off label use [Unknown]
  - Drug effective for unapproved indication [Unknown]
  - Inappropriate schedule of product administration [Unknown]
  - Incorrect dose administered [Unknown]

NARRATIVE: CASE EVENT DATE: 20230801
